FAERS Safety Report 7209649-4 (Version None)
Quarter: 2011Q1

REPORT INFORMATION
  Report Type: 
  Country: None (occurrence: None)
  Receive Date: 20110103
  Receipt Date: 20110103
  Transmission Date: 20110831
  Serious: Yes (Other)
  Sender: FDA-Public Use
  Company Number: None

PATIENT
  Sex: Female
  Weight: 74.8435 kg

DRUGS (1)
  1. COLD MULTI-SYMPTOM DAYTIME NON-DROWSY WALGREENS [Suspect]
     Indication: NASOPHARYNGITIS
     Dosage: 2 1 PO
     Route: 048
     Dates: start: 20101231, end: 20101231

REACTIONS (8)
  - VERTIGO [None]
  - CAFFEINE CONSUMPTION [None]
  - MOBILITY DECREASED [None]
  - DYSSTASIA [None]
  - ABASIA [None]
  - PALPITATIONS [None]
  - APHAGIA [None]
  - CONVULSION [None]
